FAERS Safety Report 5134063-5 (Version None)
Quarter: 2007Q1

REPORT INFORMATION
  Report Type: 
  Country: None (occurrence: None)
  Receive Date: 20061019
  Receipt Date: 20061009
  Transmission Date: 20070707
  Serious: Yes (Death, Life-Threatening, Hospitalization)
  Sender: FDA-Public Use
  Company Number: 2006111392

PATIENT
  Age: 68 Year
  Sex: Male

DRUGS (7)
  1. SUTENT [Suspect]
     Indication: RENAL CELL CARCINOMA STAGE UNSPECIFIED
     Dosage: 50 MG (50 MG, 1 IN 1 D), ORAL
     Route: 048
     Dates: start: 20060731, end: 20060829
  2. MS CONTIN [Concomitant]
  3. LACTULOSE [Concomitant]
  4. ACETAMINOPHEN [Concomitant]
  5. PREDNISOLONE [Concomitant]
  6. TEMAZEPAM [Concomitant]
  7. ORDINE (MORPHINE HYDROCHLORIDE) [Concomitant]

REACTIONS (2)
  - GENERAL PHYSICAL HEALTH DETERIORATION [None]
  - PNEUMOCYSTIS JIROVECI PNEUMONIA [None]
